FAERS Safety Report 6916396-2 (Version None)
Quarter: 2010Q3

REPORT INFORMATION
  Report Type: 
  Country: None (occurrence: None)
  Receive Date: 20100810
  Receipt Date: 20080717
  Transmission Date: 20110219
  Serious: No
  Sender: FDA-Public Use
  Company Number: US-PFIZER INC-2008050946

PATIENT
  Sex: Female

DRUGS (3)
  1. GLUCOTROL [Suspect]
  2. INSULIN DETEMIR [Suspect]
  3. METFORMIN HCL [Suspect]

REACTIONS (2)
  - BLOOD GLUCOSE INCREASED [None]
  - DRUG INEFFECTIVE [None]
